FAERS Safety Report 8499161-7 (Version None)
Quarter: 2012Q2

REPORT INFORMATION
  Report Type: 
  Country: None (occurrence: None)
  Receive Date: 20120405
  Receipt Date: 20100520
  Transmission Date: 20120825
  Serious: Yes (Hospitalization)
  Sender: FDA-Public Use
  Company Number: PHHY2010US33257

PATIENT
  Age: 73 Year
  Sex: Female

DRUGS (14)
  1. ZYRTEC [Concomitant]
  2. GLUCOSAMINE (GLUCOSAMINE) [Concomitant]
  3. LEVOTHYROXINE SODIUM [Concomitant]
  4. RAMIPRIL [Concomitant]
  5. OMEGA D VITAMIN (NO INGREDIENTS/SUBSTANCES) [Concomitant]
  6. RECLAST [Suspect]
  7. LIPITOR [Concomitant]
  8. TOPROL-XL [Concomitant]
  9. CONCENTRATED OMEGA 3 (FISH OIL) [Concomitant]
  10. MEGA MAGNESIUM (MAGNESIUM) [Concomitant]
  11. ALTACE [Concomitant]
  12. TIR B PLEX (NICOTINAMIDE, PYRIDOXINE HYDROCHLORIDE, RIBOFLAVIN, THIAMI [Concomitant]
  13. PRO-ENZ (NO INGREDIENTS/SUBSTANCES) [Concomitant]
  14. LEXIPRO (ESCITALOPRAM OXALATE) [Concomitant]

REACTIONS (2)
  - PAIN [None]
  - MYALGIA [None]
